FAERS Safety Report 9833147 (Version 2)
Quarter: 2014Q1

REPORT INFORMATION
  Report Type: Spontaneous
  Country: GR (occurrence: GR)
  Receive Date: 20140121
  Receipt Date: 20140130
  Transmission Date: 20141002
  Serious: No
  Sender: FDA-Public Use
  Company Number: GR-TAKEDA-2014TJP000579

PATIENT
  Sex: 0

DRUGS (1)
  1. COMPETACT [Suspect]
     Indication: TYPE 2 DIABETES MELLITUS
     Dosage: 850 MG, BID
     Route: 065
     Dates: start: 2013

REACTIONS (3)
  - Dry mouth [Recovered/Resolved]
  - Stomatitis [Recovered/Resolved]
  - Lip infection [Recovered/Resolved]
